FAERS Safety Report 9278381 (Version 1)
Quarter: 2013Q2

REPORT INFORMATION
  Report Type: Spontaneous
  Country: FR (occurrence: FR)
  Receive Date: 20130508
  Receipt Date: 20130508
  Transmission Date: 20140414
  Serious: Yes (Other)
  Sender: FDA-Public Use
  Company Number: FR-SANOFI-AVENTIS-2013SA044450

PATIENT
  Sex: Female

DRUGS (14)
  1. LOVENOX [Suspect]
     Indication: PULMONARY EMBOLISM
     Route: 058
     Dates: start: 20130320, end: 20130326
  2. PREVISCAN [Suspect]
     Indication: PULMONARY EMBOLISM
     Route: 048
     Dates: start: 20130322, end: 20130328
  3. AMOXICILLIN/CLAVULANIC ACID [Suspect]
     Indication: PNEUMONIA
     Route: 042
     Dates: start: 20130319, end: 20130320
  4. AMOXICILLIN/CLAVULANIC ACID [Suspect]
     Indication: LUNG DISORDER
     Route: 042
     Dates: start: 20130319, end: 20130320
  5. AMOXICILLIN/CLAVULANIC ACID [Suspect]
     Indication: PNEUMONIA
     Route: 048
     Dates: start: 20130321, end: 20130326
  6. AMOXICILLIN/CLAVULANIC ACID [Suspect]
     Indication: LUNG DISORDER
     Route: 048
     Dates: start: 20130321, end: 20130326
  7. LEPONEX [Concomitant]
  8. APOKINON [Concomitant]
  9. LYSANXIA [Concomitant]
  10. MOTILIUM [Concomitant]
  11. MANTADIX [Concomitant]
  12. GUTRON [Concomitant]
  13. DUPHALAC /NET/ [Concomitant]
  14. TROSPIUM CHLORIDE [Concomitant]

REACTIONS (2)
  - Hepatitis [Recovering/Resolving]
  - Hepatic enzyme increased [Recovering/Resolving]
